FAERS Safety Report 7199346-6 (Version None)
Quarter: 2010Q4

REPORT INFORMATION
  Report Type: 
  Country: None (occurrence: None)
  Receive Date: 20101228
  Receipt Date: 20101216
  Transmission Date: 20110411
  Serious: Yes (Other)
  Sender: FDA-Public Use
  Company Number: JP-ELI_LILLY_AND_COMPANY-JP201012004911

PATIENT
  Sex: Female

DRUGS (2)
  1. TADALAFIL [Suspect]
     Dosage: 20 MG, DAILY (1/D)
     Route: 048
     Dates: start: 20101027, end: 20101202
  2. VANCOMYCIN [Concomitant]
     Dosage: 1.5 G, DAILY (1/D)
     Route: 042
     Dates: start: 20101120, end: 20101202

REACTIONS (1)
  - PLATELET COUNT DECREASED [None]
